FAERS Safety Report 26117763 (Version 2)
Quarter: 2025Q4

REPORT INFORMATION
  Report Type: Spontaneous
  Country: EU (occurrence: EU)
  Receive Date: 20251203
  Receipt Date: 20251204
  Transmission Date: 20260118
  Serious: Yes (Other)
  Sender: PFIZER
  Company Number: EU-TEVA-VS-3393751

PATIENT
  Age: 52 Year
  Sex: Male

DRUGS (6)
  1. PEMETREXED [Suspect]
     Active Substance: PEMETREXED
     Indication: Radiotherapy
     Dosage: 500 MG/M2
     Dates: start: 20240711, end: 202412
  2. PEMETREXED [Suspect]
     Active Substance: PEMETREXED
     Indication: Metastases to central nervous system
  3. CARBOPLATIN [Concomitant]
     Active Substance: CARBOPLATIN
     Indication: Radiotherapy
     Dosage: UNK (AREA UNDER THE CURVE OF 5)
  4. CARBOPLATIN [Concomitant]
     Active Substance: CARBOPLATIN
     Indication: Metastases to central nervous system
  5. OSIMERTINIB [Concomitant]
     Active Substance: OSIMERTINIB
     Indication: Radiotherapy
     Dosage: 80 MG
     Dates: start: 20240711
  6. OSIMERTINIB [Concomitant]
     Active Substance: OSIMERTINIB
     Indication: Metastases to central nervous system

REACTIONS (3)
  - Toxicity to various agents [Unknown]
  - Nausea [Not Recovered/Not Resolved]
  - Off label use [Unknown]

NARRATIVE: CASE EVENT DATE: 20240101
